FAERS Safety Report 6999753-8 (Version None)
Quarter: 2010Q3

REPORT INFORMATION
  Report Type: 
  Country: None (occurrence: None)
  Receive Date: 20100920
  Receipt Date: 20100528
  Transmission Date: 20110219
  Serious: No
  Sender: FDA-Public Use
  Company Number: US-ASTRAZENECA-2010SE24944

PATIENT
  Age: 441 Month
  Sex: Female

DRUGS (3)
  1. SEROQUEL [Suspect]
     Indication: BIPOLAR DISORDER
     Route: 048
     Dates: end: 20100501
  2. ABILIFY [Concomitant]
  3. LITHIUM CARBONATE [Concomitant]

REACTIONS (4)
  - DRUG DOSE OMISSION [None]
  - FATIGUE [None]
  - INSOMNIA [None]
  - MULTIPLE SCLEROSIS RELAPSE [None]
